FAERS Safety Report 10010355 (Version 2)
Quarter: 2014Q1

REPORT INFORMATION
  Report Type: Other
  Country: US (occurrence: US)
  Receive Date: 20140314
  Receipt Date: 20140314
  Transmission Date: 20141002
  Serious: Yes (Other)
  Sender: FDA-Public Use
  Company Number: US-SHIRE-ALL1-2013-07494

PATIENT
  Age: 69 Year
  Sex: Female
  Weight: 69.84 kg

DRUGS (21)
  1. LIALDA [Suspect]
     Indication: COLITIS ULCERATIVE
     Dosage: 2.4 G (TWO 1.2 G TABLETS), 2X/DAY:BID (AT LUNCH AND SUPPER)
     Route: 048
     Dates: start: 20130702, end: 20140116
  2. IMODIUM [Concomitant]
     Indication: DIARRHOEA
     Dosage: UNK, AS REQ^D
     Route: 048
     Dates: start: 201305
  3. COZAAR [Concomitant]
     Indication: HYPERTENSION
     Dosage: 50 MG, 1X/DAY:QD
     Route: 048
     Dates: start: 2013
  4. HYDROCHLOROTHIAZIDE [Concomitant]
     Indication: HYPERTENSION
     Dosage: 25 MG, 1X/DAY:QD
     Route: 048
  5. ZETIA [Concomitant]
     Indication: BLOOD CHOLESTEROL INCREASED
     Dosage: 10 MG, 1X/DAY:QD
     Route: 048
  6. CRESTOR [Concomitant]
     Indication: BLOOD CHOLESTEROL INCREASED
     Dosage: 5 MG, 3 TIMES/WEEK
     Route: 048
  7. TRICOR                             /00090101/ [Concomitant]
     Indication: BLOOD CHOLESTEROL INCREASED
     Dosage: 145 MG, 1X/DAY:QD
     Route: 048
  8. FLEXERIL                           /00428402/ [Concomitant]
     Indication: MUSCLE RELAXANT THERAPY
     Dosage: 10 MG, 3X/DAY:TID
     Route: 048
  9. FLEXERIL                           /00428402/ [Concomitant]
     Indication: BACK PAIN
     Dosage: 10 MG, AS REQ^D
     Route: 048
  10. ESTRADIOL [Concomitant]
     Indication: MENOPAUSAL SYMPTOMS
     Dosage: 0.5 MG, 3 TIMES/WEEK
     Route: 048
  11. ESTRADIOL [Concomitant]
     Indication: ARTHRITIS
  12. PROMETRIUM                         /00110701/ [Concomitant]
     Indication: MENOPAUSAL SYMPTOMS
     Dosage: 100 MG, OTHER(THREE TIMES PER WEEK)
     Route: 048
  13. PROMETRIUM                         /00110701/ [Concomitant]
     Indication: ARTHRITIS
  14. FOLIC ACID [Concomitant]
     Indication: COLITIS ULCERATIVE
     Dosage: 1 MG, 1X/DAY:QD
     Route: 048
     Dates: start: 201307
  15. OMEPRAZOLE [Concomitant]
     Indication: GASTROOESOPHAGEAL REFLUX DISEASE
     Dosage: 30 MG, 1X/DAY:QD
     Route: 048
  16. OMEPRAZOLE [Concomitant]
     Dosage: 40 MG, 1X/DAY:QD
     Route: 048
  17. LEXAPRO [Concomitant]
     Indication: DEPRESSION
     Dosage: 5 MG, 1X/DAY:QD
     Route: 048
     Dates: start: 2006
  18. REMICADE [Concomitant]
     Indication: RHEUMATOID ARTHRITIS
     Dosage: UNK, OTHER(EVERY SIX WEEKS)
     Route: 042
     Dates: start: 20130807
  19. BENAZEPRIL [Concomitant]
     Indication: HYPERTENSION
     Dosage: UNK, 1X/DAY:QD
     Route: 048
  20. ALLEGRA [Concomitant]
     Indication: ALLERGY PROPHYLAXIS
     Dosage: 180 MG, 1X/DAY:QD
     Route: 048
  21. SINGULAIR [Concomitant]
     Indication: ALLERGY PROPHYLAXIS
     Dosage: 10 MG, 1X/DAY:QD
     Route: 048

REACTIONS (6)
  - Cervical spinal stenosis [Not Recovered/Not Resolved]
  - Joint injury [Recovered/Resolved]
  - Fall [Recovered/Resolved]
  - Paraesthesia [Not Recovered/Not Resolved]
  - Hypoaesthesia [Not Recovered/Not Resolved]
  - Drug prescribing error [Recovered/Resolved]
